FAERS Safety Report 10399092 (Version 1)
Quarter: 2014Q3

REPORT INFORMATION
  Report Type: Spontaneous
  Country: DE (occurrence: DE)
  Receive Date: 20140821
  Receipt Date: 20140821
  Transmission Date: 20150326
  Serious: Yes (Other)
  Sender: FDA-Public Use
  Company Number: PHHY2014DE097298

PATIENT
  Sex: Female

DRUGS (8)
  1. SUTENT [Concomitant]
     Active Substance: SUNITINIB MALATE
     Dosage: 37.5 MG, UNK
     Dates: start: 201304
  2. SUTENT [Concomitant]
     Active Substance: SUNITINIB MALATE
     Dosage: 37.5 MG, UNK
     Dates: start: 201305, end: 20130727
  3. FERINJECT [Concomitant]
     Active Substance: FERRIC CARBOXYMALTOSE
     Dosage: UNK UKN, UNK
     Dates: end: 20131004
  4. RED BLOOD CELLS, CONCENTRATED [Concomitant]
     Active Substance: HUMAN RED BLOOD CELL
     Dosage: UNK UKN, UNK
     Dates: end: 20130809
  5. ZOMETA [Suspect]
     Active Substance: ZOLEDRONIC ACID
     Dosage: UNK UKN, UNK
     Dates: start: 201209, end: 201311
  6. INLYTA [Concomitant]
     Active Substance: AXITINIB
     Dosage: 5 MG, BID
     Dates: start: 201310, end: 201311
  7. INLYTA [Concomitant]
     Active Substance: AXITINIB
     Dosage: 3 MG, BID
     Dates: start: 201311
  8. SUTENT [Concomitant]
     Active Substance: SUNITINIB MALATE
     Dosage: 50 MG, DAY 1 ? DAY 28, PAUSE FROM DAY 29 ? DAY 42
     Dates: start: 201210, end: 201303

REACTIONS (8)
  - Gastrointestinal haemorrhage [Unknown]
  - Blood pressure increased [Unknown]
  - Hepatic cyst [Unknown]
  - Gastrooesophageal reflux disease [Unknown]
  - Metastases to bone [Unknown]
  - Hiatus hernia [Unknown]
  - Disease progression [Unknown]
  - Metastases to liver [Unknown]

NARRATIVE: CASE EVENT DATE: 201210
